FAERS Safety Report 14412977 (Version 1)
Quarter: 2018Q1

REPORT INFORMATION
  Report Type: Spontaneous
  Country: CO (occurrence: CO)
  Receive Date: 20180119
  Receipt Date: 20180119
  Transmission Date: 20180509
  Serious: Yes (Hospitalization)
  Sender: FDA-Public Use
  Company Number: PHHY2018CO007146

PATIENT
  Age: 30 Year
  Sex: Male

DRUGS (7)
  1. HYDROCHLOROTHIAZIDE. [Concomitant]
     Active Substance: HYDROCHLOROTHIAZIDE
     Indication: PRODUCT USED FOR UNKNOWN INDICATION
     Route: 065
  2. LOSARTAN. [Suspect]
     Active Substance: LOSARTAN
     Indication: HYPERTENSION
     Route: 065
  3. DIPYRONE [Concomitant]
     Active Substance: DIPYRONE
     Indication: PRODUCT USED FOR UNKNOWN INDICATION
     Route: 065
  4. AMLODIPINE [Suspect]
     Active Substance: AMLODIPINE BESYLATE
     Indication: HYPERTENSION
     Route: 065
  5. SODIUM NITROPRUSSIDE. [Concomitant]
     Active Substance: SODIUM NITROPRUSSIDE
     Indication: HYPERTENSION
     Route: 065
  6. CLONIDINE. [Concomitant]
     Active Substance: CLONIDINE
     Indication: PRODUCT USED FOR UNKNOWN INDICATION
     Route: 065
  7. METOPROLOL. [Concomitant]
     Active Substance: METOPROLOL
     Indication: HYPERTENSION
     Route: 065

REACTIONS (17)
  - Constipation [Unknown]
  - Muscular weakness [Unknown]
  - Dysphonia [Unknown]
  - Atrophy [Unknown]
  - Porphyria [Unknown]
  - Paraesthesia [Unknown]
  - Tachycardia [Unknown]
  - Quadriplegia [Unknown]
  - Neuralgia [Unknown]
  - Blood pressure increased [Unknown]
  - Hyponatraemia [Unknown]
  - Bulbar palsy [Unknown]
  - Dysphagia [Unknown]
  - Chromaturia [Unknown]
  - Quadriparesis [Unknown]
  - Infection [Unknown]
  - Urinary retention [Unknown]
